FAERS Safety Report 8450848-1 (Version None)
Quarter: 2012Q2

REPORT INFORMATION
  Report Type: 
  Country: None (occurrence: None)
  Receive Date: 20120615
  Receipt Date: 20120615
  Transmission Date: 20120825
  Serious: Yes (Death, Hospitalization)
  Sender: FDA-Public Use
  Company Number: None

PATIENT
  Sex: Female
  Weight: 122 kg

DRUGS (5)
  1. CYCLOPHOSPHAMIDE [Suspect]
     Dosage: 1245 MG
     Dates: end: 20120523
  2. PRILOSEC [Concomitant]
  3. DOXORUBICIN HYDROCHLORIDE [Suspect]
     Dosage: 125 MG
     Dates: end: 20120523
  4. PEGFILGRASTIN [Concomitant]
  5. CELEXA [Concomitant]

REACTIONS (12)
  - SEPSIS [None]
  - WHITE BLOOD CELL COUNT INCREASED [None]
  - TACHYCARDIA [None]
  - HYPOTENSION [None]
  - CARDIAC ARREST [None]
  - HAEMORRHOIDS [None]
  - PROCTALGIA [None]
  - CELLULITIS [None]
  - SKIN DISORDER [None]
  - ABDOMINAL COMPARTMENT SYNDROME [None]
  - IMPLANT SITE EFFUSION [None]
  - PLEURAL EFFUSION [None]
